FAERS Safety Report 4550245-5 (Version None)
Quarter: 2004Q4

REPORT INFORMATION
  Report Type: 
  Country: None (occurrence: None)
  Receive Date: 20041227
  Receipt Date: 20041116
  Transmission Date: 20050328
  Serious: No
  Sender: FDA-Public Use
  Company Number: 04P-163-0280701-00

PATIENT
  Age: 77 Year
  Sex: Male
  Weight: 93.2 kg

DRUGS (9)
  1. HUMIRA [Suspect]
     Indication: RHEUMATOID ARTHRITIS
     Dosage: 40 MG, 1 IN 2 WK, SUBCUTANEOUS
     Route: 058
     Dates: start: 20040901
  2. FUROSEMIDE [Concomitant]
  3. CELECOXIB [Concomitant]
  4. HYDROXYCHLOROQUINE SULFATE [Concomitant]
  5. PREDNISONE [Concomitant]
  6. LOTREL [Concomitant]
  7. DEXTROPROPOXYPHENE [Concomitant]
  8. ALENDRONATE SODIUM [Concomitant]
  9. RABEPRAZOLE SODIUM [Concomitant]

REACTIONS (2)
  - INJECTION SITE HAEMORRHAGE [None]
  - INJECTION SITE PAIN [None]
